FAERS Safety Report 8782882 (Version 1)
Quarter: 2012Q4

REPORT INFORMATION
  Report Type: 
  Country: KR (occurrence: KR)
  Receive Date: 20120913
  Receipt Date: 20120913
  Transmission Date: 20130627
  Serious: Yes (Death, Other)
  Sender: FDA-Public Use
  Company Number: PHHY2010KR094810

PATIENT
  Age: 41 Year
  Sex: Male

DRUGS (5)
  1. CICLOSPORIN [Suspect]
     Indication: PROPHYLAXIS AGAINST GRAFT VERSUS HOST DISEASE
     Dosage: 5 mg/kg/day on day 1
  2. CICLOSPORIN [Suspect]
     Dosage: 3 mg/kg/day on day 0
  3. METHOTREXATE [Suspect]
     Indication: PROPHYLAXIS AGAINST GRAFT VERSUS HOST DISEASE
     Dosage: 5 mg/kg/day
     Route: 040
  4. FLUDARABINE [Concomitant]
     Dosage: 25 mg/m2 for 5 days
  5. MELPHALAN [Concomitant]
     Dosage: 140 mg/m2 for 1 day

REACTIONS (2)
  - Death [Fatal]
  - Graft versus host disease [Unknown]
